FAERS Safety Report 9543688 (Version 1)
Quarter: 2013Q2

REPORT INFORMATION
  Report Type: Spontaneous
  Country: US (occurrence: None)
  Receive Date: 20130524
  Receipt Date: 20130524
  Transmission Date: 20140414
  Serious: No
  Sender: FDA-Public Use
  Company Number: PHEH2013US002565

PATIENT
  Age: 26 Year
  Sex: Female

DRUGS (1)
  1. GILENYA (FINGOLIMOD) CAPSULE, 0.5 MG [Suspect]
     Indication: MULTIPLE SCLEROSIS
     Dosage: PO.
     Dates: start: 201103, end: 20130121

REACTIONS (3)
  - Gait disturbance [None]
  - Tremor [None]
  - Inappropriate schedule of drug administration [None]
